FAERS Safety Report 23257015 (Version 7)
Quarter: 2024Q3

REPORT INFORMATION
  Report Type: Spontaneous
  Country: DE (occurrence: DE)
  Receive Date: 20231204
  Receipt Date: 20240701
  Transmission Date: 20241016
  Serious: Yes (Death, Life-Threatening, Hospitalization, Congenital Anomaly, Other)
  Sender: SANDOZ
  Company Number: DE-BAXTER-2023BAX025246

PATIENT
  Age: 72 Year
  Sex: Male
  Weight: 65 kg

DRUGS (37)
  1. BORTEZOMIB [Suspect]
     Active Substance: BORTEZOMIB
     Indication: Drug therapy
     Dosage: 3 MG
     Route: 058
     Dates: start: 20230224, end: 20230224
  2. BORTEZOMIB [Suspect]
     Active Substance: BORTEZOMIB
     Dosage: 3 MG
     Route: 058
     Dates: start: 20221228, end: 20230228
  3. BORTEZOMIB [Suspect]
     Active Substance: BORTEZOMIB
     Dosage: 3 MG
     Route: 058
     Dates: start: 20230228, end: 20230228
  4. BORTEZOMIB [Suspect]
     Active Substance: BORTEZOMIB
     Dosage: UNK
     Route: 058
     Dates: start: 20230204
  5. BORTEZOMIB [Suspect]
     Active Substance: BORTEZOMIB
     Indication: Plasma cell myeloma
     Dosage: UNK,AS A PART OF FIRST CYCLE OF TREATMENT
     Route: 065
     Dates: start: 20221117
  6. CYCLOPHOSPHAMIDE [Suspect]
     Active Substance: CYCLOPHOSPHAMIDE
     Dosage: 3 MG
     Route: 058
     Dates: start: 20230228, end: 20230228
  7. CYCLOPHOSPHAMIDE [Suspect]
     Active Substance: CYCLOPHOSPHAMIDE
     Dosage: UNK
     Route: 058
     Dates: start: 20230204
  8. CYCLOPHOSPHAMIDE [Suspect]
     Active Substance: CYCLOPHOSPHAMIDE
     Indication: Plasma cell myeloma
     Dosage: UNK
     Route: 065
  9. CYCLOPHOSPHAMIDE [Suspect]
     Active Substance: CYCLOPHOSPHAMIDE
     Dosage: UNK
     Route: 065
     Dates: start: 20221229, end: 20221231
  10. CYCLOPHOSPHAMIDE [Suspect]
     Active Substance: CYCLOPHOSPHAMIDE
     Indication: Salvage therapy
     Dosage: UNK, AS A PART OF FIRST CYCLE OF TREATEMNT
     Route: 058
     Dates: start: 20221117
  11. CARFILZOMIB [Suspect]
     Active Substance: CARFILZOMIB
     Indication: Plasma cell myeloma
     Dosage: UNK
     Route: 065
  12. DEXAMETHASONE [Suspect]
     Active Substance: DEXAMETHASONE
     Dosage: UNK
     Route: 065
     Dates: start: 20221229, end: 20221231
  13. DEXAMETHASONE [Suspect]
     Active Substance: DEXAMETHASONE
     Dosage: UNK
     Route: 065
     Dates: start: 20230320, end: 20230320
  14. DEXAMETHASONE [Suspect]
     Active Substance: DEXAMETHASONE
     Indication: Sepsis
     Dosage: UNK, AS A PART OF FIRST CYCLE OF TREATEMNT
     Route: 065
     Dates: start: 20221117
  15. DOXORUBICIN [Suspect]
     Active Substance: DOXORUBICIN
     Indication: Salvage therapy
     Dosage: UNK
     Route: 065
     Dates: start: 20221229, end: 20221231
  16. DOXORUBICIN [Suspect]
     Active Substance: DOXORUBICIN
     Indication: Plasma cell myeloma
     Dosage: UNK, AS A PART OF FIRST CYCLE OF TREATEMNT
     Route: 065
     Dates: start: 20221117
  17. DARATUMUMAB [Suspect]
     Active Substance: DARATUMUMAB
     Dosage: 1120 MG
     Route: 042
     Dates: start: 20230224, end: 20240224
  18. DARATUMUMAB [Suspect]
     Active Substance: DARATUMUMAB
     Dosage: 1120 MG
     Route: 042
     Dates: start: 20230228, end: 20230228
  19. DARATUMUMAB [Suspect]
     Active Substance: DARATUMUMAB
     Indication: Product used for unknown indication
     Dosage: UNK, AS A PART OF FIRST CYCLE OF TREATMENT
     Route: 042
     Dates: start: 20221117
  20. DARZALEX [Suspect]
     Active Substance: DARATUMUMAB
     Indication: Drug therapy
     Dosage: 1120 MG
     Route: 042
     Dates: start: 20230224, end: 20230224
  21. DARZALEX [Suspect]
     Active Substance: DARATUMUMAB
     Dosage: 1120 MG
     Route: 042
     Dates: start: 20230228, end: 20230228
  22. DARZALEX [Suspect]
     Active Substance: DARATUMUMAB
     Indication: Plasma cell myeloma
     Dosage: UNK
     Route: 042
     Dates: start: 20221212
  23. DARZALEX [Suspect]
     Active Substance: DARATUMUMAB
     Dosage: UNK
     Route: 042
     Dates: start: 20230204
  24. DARZALEX [Suspect]
     Active Substance: DARATUMUMAB
     Dosage: UNK, AS A PART OF FIRST CYCLE OF TREATEMNT
     Route: 042
     Dates: start: 20221117
  25. ETOPOSIDE [Suspect]
     Active Substance: ETOPOSIDE
     Indication: Plasma cell myeloma
     Dosage: UNK
     Route: 065
  26. MELPHALAN [Suspect]
     Active Substance: MELPHALAN
     Indication: Overdose
     Dosage: 95 MG
     Route: 042
     Dates: start: 20230310, end: 20230311
  27. POMALIDOMIDE [Suspect]
     Active Substance: POMALIDOMIDE
     Indication: Product used for unknown indication
     Dosage: UNK, AS A PART OF FIRST CYCLE OF TREATMENT
     Route: 065
     Dates: start: 20221117
  28. POMALIDOMIDE [Suspect]
     Active Substance: POMALIDOMIDE
     Dosage: 1120 MG
     Route: 042
     Dates: start: 20230224, end: 20230224
  29. POMALIDOMIDE [Suspect]
     Active Substance: POMALIDOMIDE
     Dosage: 1120 MG
     Route: 042
     Dates: start: 20230228, end: 20230228
  30. TECLISTAMAB [Suspect]
     Active Substance: TECLISTAMAB
     Indication: Product used for unknown indication
     Dosage: AFTER CYCLOPHOSPHAMIDE AND DOXORUBICIN ADMINISTRATION ROUTE OF ADMIN (FREE TEXT): UNKNOWN ROUTE
     Route: 065
  31. THALIDOMIDE [Suspect]
     Active Substance: THALIDOMIDE
     Indication: Product used for unknown indication
     Dosage: UNK
     Route: 065
  32. THALIDOMIDE [Suspect]
     Active Substance: THALIDOMIDE
     Dosage: UNK ROUTE OF ADMIN (FREE TEXT): UNKNOWN ROUTE
     Route: 065
  33. ACYCLOVIR [Concomitant]
     Active Substance: ACYCLOVIR
     Indication: Sepsis
     Dosage: UNK
     Route: 042
     Dates: start: 20230320
  34. MEROPENEM [Concomitant]
     Active Substance: MEROPENEM
     Indication: Sepsis
     Dosage: UNK
     Route: 042
     Dates: start: 20230321
  35. MEROPENEM [Concomitant]
     Active Substance: MEROPENEM
     Indication: Bacterial infection
  36. PIPERACILLIN [Concomitant]
     Active Substance: PIPERACILLIN
     Indication: Sepsis
     Dosage: UNK
     Route: 042
     Dates: start: 20230320, end: 20230321
  37. TAZOBACTAM [Concomitant]
     Active Substance: TAZOBACTAM
     Indication: Sepsis
     Dosage: UNK
     Route: 042
     Dates: start: 20230320, end: 20230321

REACTIONS (21)
  - Sepsis [Fatal]
  - Bone marrow failure [Fatal]
  - Congenital aplasia [Fatal]
  - Multiple organ dysfunction syndrome [Fatal]
  - Congenital aplasia [Fatal]
  - Bone marrow failure [Recovered/Resolved]
  - Device related sepsis [Recovered/Resolved]
  - Pneumonia [Unknown]
  - Congenital aplasia [Recovered/Resolved]
  - General physical health deterioration [Unknown]
  - Pulmonary oedema [Recovered/Resolved]
  - Febrile bone marrow aplasia [Recovered/Resolved]
  - Pyrexia [Recovered/Resolved]
  - Depressed level of consciousness [Unknown]
  - Disturbance in attention [Recovered/Resolved]
  - Renal failure [Not Recovered/Not Resolved]
  - Tachypnoea [Recovered/Resolved]
  - Hypertension [Not Recovered/Not Resolved]
  - Tachycardia [Recovered/Resolved]
  - Tachypnoea [Recovered/Resolved]
  - Product use in unapproved indication [Recovered/Resolved]

NARRATIVE: CASE EVENT DATE: 20221218
